FAERS Safety Report 15541300 (Version 1)
Quarter: 2018Q4

REPORT INFORMATION
  Report Type: Spontaneous
  Country: PT (occurrence: PT)
  Receive Date: 20181023
  Receipt Date: 20181023
  Transmission Date: 20190205
  Serious: Yes (Other)
  Sender: FDA-Public Use
  Company Number: PT-BAUSCH-BL-2018-028782

PATIENT
  Age: 34 Year
  Sex: Female

DRUGS (4)
  1. ERYTHROMYCIN. [Suspect]
     Active Substance: ERYTHROMYCIN
     Indication: IMPAIRED GASTRIC EMPTYING
     Route: 065
  2. DOMPERIDONE [Suspect]
     Active Substance: DOMPERIDONE
     Indication: IMPAIRED GASTRIC EMPTYING
     Route: 065
  3. DROPERIDOL. [Suspect]
     Active Substance: DROPERIDOL
     Indication: IMPAIRED GASTRIC EMPTYING
     Route: 065
  4. ONDANSETRON [Suspect]
     Active Substance: ONDANSETRON
     Indication: IMPAIRED GASTRIC EMPTYING
     Route: 065

REACTIONS (1)
  - Drug ineffective [Recovered/Resolved]
